FAERS Safety Report 12309992 (Version 1)
Quarter: 2016Q2

REPORT INFORMATION
  Report Type: Spontaneous
  Country: US (occurrence: None)
  Receive Date: 20160426
  Receipt Date: 20160426
  Transmission Date: 20160815
  Serious: No
  Sender: FDA-Public Use
  Company Number: None

PATIENT
  Age: 68 Year
  Sex: Male
  Weight: 64.6 kg

DRUGS (1)
  1. DEXTROSE/HEPARIN [Suspect]
     Active Substance: DEXTROSE\HEPARIN
     Indication: VASCULAR OPERATION
     Route: 042
     Dates: start: 20160325, end: 20160327

REACTIONS (2)
  - Haemorrhage [None]
  - Post procedural haematoma [None]

NARRATIVE: CASE EVENT DATE: 20160325
